FAERS Safety Report 9262389 (Version 1)
Quarter: 2013Q2

REPORT INFORMATION
  Report Type: Spontaneous
  Country: CH (occurrence: CH)
  Receive Date: 20130430
  Receipt Date: 20130430
  Transmission Date: 20140414
  Serious: Yes (Life-Threatening, Other)
  Sender: FDA-Public Use
  Company Number: CH-AMGEN-CHESP2013029623

PATIENT
  Age: 59 Year
  Sex: Female

DRUGS (9)
  1. ENBREL [Suspect]
     Indication: PSORIASIS
     Dosage: 50 MG, WEEKLY
     Route: 058
     Dates: start: 201106, end: 201109
  2. METHOTREXATE SODIUM [Suspect]
     Indication: PSORIASIS
     Dosage: UNK UNK, QWK  (7.5 MG WEEKLY AND 15 MG WEEKLY)
     Dates: start: 201004, end: 201008
  3. HUMIRA [Interacting]
     Indication: PSORIASIS
     Dosage: UNK
     Route: 058
     Dates: start: 201008, end: 201106
  4. HUMIRA [Interacting]
     Dosage: 40 MG, ONCE EVERY 2 WEEKS
     Route: 058
     Dates: start: 201109
  5. SANDIMMUN NEORAL [Suspect]
     Indication: PSORIASIS
     Dosage: 125 MG, 1X/DAY
     Route: 048
     Dates: start: 201104, end: 201108
  6. SEROQUEL [Concomitant]
     Indication: DEPRESSION
     Dosage: 25 MG, 1X/DAY
     Route: 048
  7. DEROXAT [Concomitant]
     Indication: DEPRESSION
     Dosage: 20 MG, 1X/DAY
     Route: 048
  8. TEMESTA                            /00273201/ [Concomitant]
     Indication: ANXIETY DISORDER
     Dosage: 1 MG, 2X/DAY
     Route: 048
  9. CIMIFEMIN [Concomitant]
     Dosage: 1 DF, 1X/DAY
     Route: 048

REACTIONS (2)
  - Drug interaction [Unknown]
  - Lung neoplasm malignant [Not Recovered/Not Resolved]
